FAERS Safety Report 9837899 (Version 1)
Quarter: 2013Q4

REPORT INFORMATION
  Report Type: Spontaneous
  Country: US (occurrence: None)
  Receive Date: 20131205
  Receipt Date: 20131205
  Transmission Date: 20140711
  Serious: No
  Sender: FDA-Public Use
  Company Number: 163-POMAL-13102674

PATIENT
  Age: 74 Year
  Sex: Male

DRUGS (8)
  1. POMALYST (POMALIDOMIDE) (4 MILLIGRAM, CAPSULES) [Suspect]
     Indication: PLASMA CELL MYELOMA
     Dosage: 4 MG, 21 IN 21 D, PO
     Route: 048
     Dates: start: 20130821
  2. LASIX (FUROSEMIDE) [Concomitant]
  3. CHLORTHALIDONE (CHLORTHADONE) (CHLORTHALIDONE) [Concomitant]
  4. COUMADIN (WARFARIN SODIUM) [Concomitant]
  5. DEXAMETHASONE (DEXAMETHASONE) [Concomitant]
  6. OXCARBAZEPIN (OXCARBAZEPINE) [Concomitant]
  7. METOPROLOL (METOPROLOL) [Concomitant]
  8. OXYCODONE (OXYCODONE) [Concomitant]

REACTIONS (1)
  - Cataract [None]
